FAERS Safety Report 9376969 (Version 1)
Quarter: 2013Q3

REPORT INFORMATION
  Report Type: Report from Study
  Country: BR (occurrence: BR)
  Receive Date: 20130701
  Receipt Date: 20130701
  Transmission Date: 20140515
  Serious: Yes (Death, Hospitalization)
  Sender: FDA-Public Use
  Company Number: PHHY2013BR067408

PATIENT
  Sex: Male

DRUGS (2)
  1. FORASEQ [Suspect]
     Indication: PNEUMONIA
     Dosage: 1 DF, QD
     Dates: start: 201106
  2. FORASEQ [Suspect]
     Indication: OFF LABEL USE

REACTIONS (5)
  - Pneumonia [Fatal]
  - Influenza [Fatal]
  - Cough [Fatal]
  - Urinary tract infection [Unknown]
  - Kidney infection [Unknown]
